FAERS Safety Report 14974836 (Version 1)
Quarter: 2018Q2

REPORT INFORMATION
  Report Type: Spontaneous
  Country: DE (occurrence: DE)
  Receive Date: 20180605
  Receipt Date: 20180605
  Transmission Date: 20180711
  Serious: Yes (Death, Other)
  Sender: FDA-Public Use
  Company Number: DE-PFIZER INC-2018224009

PATIENT
  Age: 54 Year
  Sex: Female

DRUGS (11)
  1. EXEMESTANE. [Suspect]
     Active Substance: EXEMESTANE
     Dosage: UNK
     Route: 065
     Dates: start: 20171026
  2. PALBOCICLIB [Suspect]
     Active Substance: PALBOCICLIB
     Dosage: 8TH CYCLE
     Route: 065
     Dates: start: 20170721
  3. PALBOCICLIB [Suspect]
     Active Substance: PALBOCICLIB
     Dosage: 7TH CYCLE
     Route: 065
     Dates: start: 20170623
  4. ZOMETA [Suspect]
     Active Substance: ZOLEDRONIC ACID
     Dosage: UNK, CYCLIC (EVERY 8 WEEKS)
     Route: 065
  5. PALBOCICLIB [Suspect]
     Active Substance: PALBOCICLIB
     Dosage: 1ST CYCLE
     Route: 065
  6. PALBOCICLIB [Suspect]
     Active Substance: PALBOCICLIB
     Dosage: 100 MG, QD (2ND CYCLE)
     Route: 065
  7. ZOMETA [Suspect]
     Active Substance: ZOLEDRONIC ACID
     Dosage: UNK, CYCLIC (EVERY 8 WEEKS)
     Route: 065
     Dates: start: 201609, end: 201612
  8. EXEMESTANE. [Suspect]
     Active Substance: EXEMESTANE
     Dosage: UNK
     Route: 065
     Dates: start: 20171010
  9. FASLODEX [Suspect]
     Active Substance: FULVESTRANT
     Dosage: 75 MG, UNK
     Route: 065
     Dates: start: 20170623
  10. PACLITAXEL. [Suspect]
     Active Substance: PACLITAXEL
     Dosage: UNK, QW
     Route: 065
     Dates: start: 201609, end: 201612
  11. PALBOCICLIB [Suspect]
     Active Substance: PALBOCICLIB
     Dosage: 75 MG, (3RD CYCLE)
     Route: 065

REACTIONS (9)
  - Neoplasm progression [Unknown]
  - Lumbar vertebral fracture [Unknown]
  - Fatigue [Unknown]
  - Death [Fatal]
  - Cachexia [Unknown]
  - Anaemia [Unknown]
  - Back pain [Unknown]
  - Haemoglobin decreased [Unknown]
  - Leukopenia [Unknown]

NARRATIVE: CASE EVENT DATE: 20170815
